FAERS Safety Report 21733419 (Version 2)
Quarter: 2023Q1

REPORT INFORMATION
  Report Type: Report from Study
  Country: US (occurrence: US)
  Receive Date: 20221215
  Receipt Date: 20230120
  Transmission Date: 20230417
  Serious: No
  Sender: FDA-Public Use
  Company Number: US-ABBVIE-4199468

PATIENT
  Age: 81 Year
  Sex: Female

DRUGS (2)
  1. HUMIRA [Suspect]
     Active Substance: ADALIMUMAB
     Indication: Rheumatoid arthritis
     Route: 058
  2. HUMIRA [Suspect]
     Active Substance: ADALIMUMAB
     Dosage: CITRATE FREE FIRST ADMIN DATE 13 DEC 2022
     Route: 058

REACTIONS (8)
  - Upper respiratory tract infection [Unknown]
  - COVID-19 [Unknown]
  - Ocular hyperaemia [Unknown]
  - Immune system disorder [Unknown]
  - Injection site reaction [Unknown]
  - Rheumatoid arthritis [Unknown]
  - Generalised oedema [Unknown]
  - Musculoskeletal stiffness [Unknown]

NARRATIVE: CASE EVENT DATE: 20221101
